FAERS Safety Report 21224083 (Version 1)
Quarter: 2022Q3

REPORT INFORMATION
  Report Type: Spontaneous
  Country: US (occurrence: US)
  Receive Date: 20220817
  Receipt Date: 20220817
  Transmission Date: 20221027
  Serious: No
  Sender: FDA-Public Use
  Company Number: US-SA-2022MK000037

PATIENT
  Age: 66 Year
  Sex: Male
  Weight: 86.260 kg

DRUGS (9)
  1. AFREZZA [Suspect]
     Active Substance: INSULIN HUMAN
     Indication: Type 1 diabetes mellitus
     Dosage: 4-8 UNITS BEFORE BREAKFAST AND LUNCH, AND 4-12 UNITS BEFORE DINNER
     Dates: start: 20220106
  2. AFREZZA [Suspect]
     Active Substance: INSULIN HUMAN
     Dosage: 4-8 UNITS BEFORE BREAKFAST AND LUNCH, AND 4-12 UNITS BEFORE DINNER
     Dates: start: 20220106
  3. AFREZZA [Suspect]
     Active Substance: INSULIN HUMAN
     Dosage: 4-8 UNITS BEFORE BREAKFAST AND LUNCH, AND 4-12 UNITS BEFORE DINNER
     Dates: start: 20220106
  4. NOVOLOG [Concomitant]
     Active Substance: INSULIN ASPART
     Indication: Type 1 diabetes mellitus
     Dosage: 5 DIFFERENT BASAL DOSES
  5. SYNTHROID [Concomitant]
     Active Substance: LEVOTHYROXINE SODIUM
     Indication: Hypothyroidism
  6. CARVEDILOL [Concomitant]
     Active Substance: CARVEDILOL
     Indication: Hypertension
     Route: 048
  7. AMLODIPINE [Concomitant]
     Active Substance: AMLODIPINE BESYLATE
     Indication: Hypertension
     Route: 048
  8. ATORVASTATIN [Concomitant]
     Active Substance: ATORVASTATIN
     Indication: Blood cholesterol increased
     Route: 048
  9. LISINOPRIL [Concomitant]
     Active Substance: LISINOPRIL
     Indication: Hypertension
     Route: 048

REACTIONS (2)
  - Throat irritation [Not Recovered/Not Resolved]
  - Cough [Not Recovered/Not Resolved]
